FAERS Safety Report 24723322 (Version 1)
Quarter: 2024Q4

REPORT INFORMATION
  Report Type: Spontaneous
  Country: CN (occurrence: CN)
  Receive Date: 20241211
  Receipt Date: 20241211
  Transmission Date: 20250114
  Serious: Yes (Other)
  Sender: ELI LILLY AND COMPANY
  Company Number: CN-ELI_LILLY_AND_COMPANY-CN202412004419

PATIENT
  Age: 56 Year
  Sex: Male

DRUGS (2)
  1. PEMETREXED [Suspect]
     Active Substance: PEMETREXED
     Indication: Neoplasm
     Dosage: 0.7 G, OTHER (EVERY 21 DAYS)
     Route: 041
     Dates: start: 20241017, end: 20241017
  2. SELPERCATINIB [Suspect]
     Active Substance: SELPERCATINIB
     Indication: Neoplasm
     Dosage: 160 MG, BID
     Route: 048
     Dates: start: 20230201, end: 20241105

REACTIONS (1)
  - Myelosuppression [Recovering/Resolving]

NARRATIVE: CASE EVENT DATE: 20241028
